FAERS Safety Report 10600103 (Version 2)
Quarter: 2015Q4

REPORT INFORMATION
  Report Type: Spontaneous
  Country: US (occurrence: US)
  Receive Date: 20141122
  Receipt Date: 20151126
  Transmission Date: 20160304
  Serious: No
  Sender: FDA-Public Use
  Company Number: US-SA-2014SA122817

PATIENT
  Age: 78 Year
  Sex: Female

DRUGS (2)
  1. PHOSLO [Concomitant]
     Active Substance: CALCIUM ACETATE
  2. RENVELA [Suspect]
     Active Substance: SEVELAMER CARBONATE
     Indication: HYPERPHOSPHATAEMIA
     Dosage: 2 PACKS WITH MEALS AND 1 PACK WITH SNACKS
     Route: 048
     Dates: start: 2014

REACTIONS (2)
  - Overdose [Unknown]
  - Nausea [Not Recovered/Not Resolved]

NARRATIVE: CASE EVENT DATE: 2014
